FAERS Safety Report 15987701 (Version 1)
Quarter: 2019Q1

REPORT INFORMATION
  Report Type: Spontaneous
  Country: DE (occurrence: DE)
  Receive Date: 20190220
  Receipt Date: 20190220
  Transmission Date: 20190418
  Serious: Yes (Hospitalization, Disabling)
  Sender: FDA-Public Use
  Company Number: DE-PFIZER INC-2019072246

PATIENT
  Age: 65 Year
  Sex: Male

DRUGS (5)
  1. RAMIPRIL. [Concomitant]
     Active Substance: RAMIPRIL
     Dosage: UNK
  2. CARVEDIGAMMA [Concomitant]
     Dosage: UNK
  3. TORASEMID [Concomitant]
     Active Substance: TORSEMIDE
     Dosage: UNK
  4. NORVASC [Suspect]
     Active Substance: AMLODIPINE BESYLATE
     Indication: HYPERTENSION
     Dosage: 5 MG, 2X/DAY (5-0-5)
     Dates: start: 20170301, end: 20181231
  5. ASPIRIN. [Concomitant]
     Active Substance: ASPIRIN
     Dosage: UNK

REACTIONS (6)
  - Anxiety [Unknown]
  - Pain in extremity [Unknown]
  - Tremor [Unknown]
  - Movement disorder [Unknown]
  - Dizziness [Unknown]
  - Muscle rigidity [Unknown]
